FAERS Safety Report 8890584 (Version 2)
Quarter: 2013Q1

REPORT INFORMATION
  Report Type: Spontaneous
  Country: US (occurrence: US)
  Receive Date: 20121107
  Receipt Date: 20130207
  Transmission Date: 20140127
  Serious: Yes (Other)
  Sender: FDA-Public Use
  Company Number: US-MERCK-1210USA013552

PATIENT
  Sex: Male

DRUGS (6)
  1. PEGINTRON [Suspect]
     Indication: HEPATITIS C
     Dosage: UNK
     Dates: start: 20121102, end: 20130115
  2. PEGINTRON [Suspect]
     Dosage: UNK
     Dates: start: 2013
  3. VICTRELIS [Suspect]
     Indication: HEPATITIS C
     Dosage: UNK
     Dates: start: 20121204, end: 20130115
  4. VICTRELIS [Suspect]
     Dosage: UNK
     Dates: start: 2013
  5. RIBAVIRIN [Suspect]
     Indication: HEPATITIS C
     Dosage: UNK
     Dates: start: 20121102, end: 20130115
  6. RIBAVIRIN [Suspect]
     Dosage: UNK
     Dates: start: 2013

REACTIONS (3)
  - Laboratory test abnormal [Unknown]
  - Fatigue [Recovering/Resolving]
  - Arthralgia [Recovering/Resolving]
